FAERS Safety Report 4550697-0 (Version None)
Quarter: 2004Q4

REPORT INFORMATION
  Report Type: 
  Country: None (occurrence: None)
  Receive Date: 20041217
  Receipt Date: 20041021
  Transmission Date: 20050328
  Serious: No
  Sender: FDA-Public Use
  Company Number: 2004-BP-10642BP(0)

PATIENT
  Age: 56 Year
  Sex: Male

DRUGS (2)
  1. SPIRIVA [Suspect]
     Indication: CHRONIC OBSTRUCTIVE AIRWAYS DISEASE
     Dosage: 18 MCG (19 MCG PO)
     Route: 048
  2. ADVAIR (SERETIDE MITE) [Suspect]
     Dosage: 18 MCG (18 MCG PO)
     Route: 048

REACTIONS (3)
  - ACCIDENTAL EXPOSURE [None]
  - DRUG INEFFECTIVE [None]
  - URTICARIA [None]
